FAERS Safety Report 8383052-6 (Version None)
Quarter: 2012Q2

REPORT INFORMATION
  Report Type: 
  Country: None (occurrence: None)
  Receive Date: 20120524
  Receipt Date: 20120521
  Transmission Date: 20120825
  Serious: Yes (Hospitalization)
  Sender: FDA-Public Use
  Company Number: PHHY2012FR043556

PATIENT
  Sex: Female

DRUGS (6)
  1. VALSARTAN [Suspect]
     Dosage: 160 MG, QD
     Route: 048
     Dates: end: 20120223
  2. AMLODIPINE BESYLATE [Suspect]
     Dosage: 10 MG, QD
     Route: 048
     Dates: end: 20120223
  3. MODOPAR [Concomitant]
     Dosage: 1 DF, QD
     Dates: end: 20120223
  4. PERINDOPRIL ERBUMINE [Suspect]
     Dosage: 5 M, QD
     Route: 048
     Dates: end: 20120223
  5. CRESTOR [Concomitant]
     Dosage: 5 MG, UNK
  6. LASIX [Suspect]
     Dosage: 20 MG, QD
     Route: 048
     Dates: end: 20120223

REACTIONS (2)
  - ORTHOSTATIC HYPOTENSION [None]
  - FALL [None]
